FAERS Safety Report 9132411 (Version 1)
Quarter: 2013Q1

REPORT INFORMATION
  Report Type: Spontaneous
  Country: FR (occurrence: FR)
  Receive Date: 20130107
  Receipt Date: 20130107
  Transmission Date: 20140127
  Serious: Yes (Hospitalization)
  Sender: FDA-Public Use
  Company Number: FR-GLAXOSMITHKLINE-B0855229A

PATIENT
  Age: 56 Year
  Sex: Male

DRUGS (2)
  1. ARIXTRA [Suspect]
     Indication: THROMBOSIS PROPHYLAXIS
     Dosage: 2.5MG PER DAY
     Route: 058
     Dates: start: 20120829, end: 20121120
  2. KARDEGIC [Suspect]
     Indication: BONE MARROW ISCHAEMIA
     Dosage: 160MG PER DAY
     Route: 048
     Dates: start: 20120829

REACTIONS (7)
  - Muscle haemorrhage [Unknown]
  - Oedema peripheral [Unknown]
  - Haemodynamic instability [Unknown]
  - Hypotension [Unknown]
  - Tachycardia [Unknown]
  - Incorrect drug administration duration [Unknown]
  - Haemoglobin decreased [None]
